FAERS Safety Report 10990432 (Version 1)
Quarter: 2015Q1

REPORT INFORMATION
  Report Type: Spontaneous
  Country: US (occurrence: None)
  Receive Date: 20150326
  Receipt Date: 20150326
  Transmission Date: 20150721
  Serious: No
  Sender: FDA-Public Use
  Company Number: 1000073969

PATIENT
  Age: 62 Year
  Sex: Female

DRUGS (4)
  1. MAGNESIUM CITRATE. [Concomitant]
     Active Substance: MAGNESIUM CITRATE
  2. BISACODYL. [Concomitant]
     Active Substance: BISACODYL
  3. LINZESS [Suspect]
     Active Substance: LINACLOTIDE
     Indication: CONSTIPATION
     Dosage: 145 MCG
     Dates: start: 20150120, end: 20150123
  4. AMITIZA [Concomitant]
     Active Substance: LUBIPROSTONE

REACTIONS (4)
  - Intentional product misuse [None]
  - Confusional state [None]
  - Depression [None]
  - Feeling drunk [None]

NARRATIVE: CASE EVENT DATE: 20150120
